FAERS Safety Report 8490236-5 (Version None)
Quarter: 2012Q3

REPORT INFORMATION
  Report Type: 
  Country: None (occurrence: None)
  Receive Date: 20120705
  Receipt Date: 20120110
  Transmission Date: 20120928
  Serious: No
  Sender: FDA-Public Use
  Company Number: US-BAUSCH-2012BL000204

PATIENT
  Age: 62 Year
  Sex: Female

DRUGS (2)
  1. OPCON-A [Suspect]
     Indication: OFF LABEL USE
     Route: 047
     Dates: start: 20120110, end: 20120110
  2. OPCON-A [Suspect]
     Indication: HORDEOLUM
     Route: 047
     Dates: start: 20120110, end: 20120110

REACTIONS (1)
  - MYDRIASIS [None]
